FAERS Safety Report 5224400-5 (Version None)
Quarter: 2007Q1

REPORT INFORMATION
  Report Type: 
  Country: None (occurrence: None)
  Receive Date: 20070130
  Receipt Date: 20070118
  Transmission Date: 20070707
  Serious: Yes (Hospitalization)
  Sender: FDA-Public Use
  Company Number: SG-PFIZER INC-2006111395

PATIENT
  Sex: Male

DRUGS (4)
  1. SU-011,248 [Suspect]
     Indication: METASTATIC RENAL CELL CARCINOMA
     Route: 048
  2. METOCLOPRAMIDE [Concomitant]
     Route: 048
  3. CELEBREX [Concomitant]
     Route: 048
     Dates: start: 20060904
  4. OMEPRAZOLE [Concomitant]
     Route: 048
     Dates: start: 20060904

REACTIONS (1)
  - PULMONARY EMBOLISM [None]
